FAERS Safety Report 6274878-3 (Version None)
Quarter: 2009Q3

REPORT INFORMATION
  Report Type: 
  Country: None (occurrence: None)
  Receive Date: 20090717
  Receipt Date: 20090704
  Transmission Date: 20100115
  Serious: Yes (Hospitalization)
  Sender: FDA-Public Use
  Company Number: ADE2009-0719

PATIENT
  Age: 37 Year
  Sex: Female

DRUGS (5)
  1. MIRTAZAPINE [Suspect]
     Dosage: 45MG - DAILY - SEVERAL YEARS
  2. AMANTADINE HCL [Suspect]
     Dosage: 300MG - DAILY - SEVERAL YEARS
  3. FUROSEMIDE [Concomitant]
  4. TIZANIDINE HCL [Concomitant]
  5. PRAMIPEXOLE DIHYDROCHLORIDE [Suspect]
     Dosage: 2.8 MG DAILY

REACTIONS (7)
  - ACUTE PSYCHOSIS [None]
  - AGGRESSION [None]
  - CONDITION AGGRAVATED [None]
  - HALLUCINATION, AUDITORY [None]
  - HALLUCINATION, VISUAL [None]
  - JEALOUS DELUSION [None]
  - TREMOR [None]
